FAERS Safety Report 5512393-2 (Version None)
Quarter: 2007Q4

REPORT INFORMATION
  Report Type: 
  Country: None (occurrence: None)
  Receive Date: 20071107
  Receipt Date: 20071026
  Transmission Date: 20080405
  Serious: Yes (Death, Hospitalization)
  Sender: FDA-Public Use
  Company Number: 229-C5013-07061537

PATIENT
  Age: 84 Year
  Sex: Male

DRUGS (3)
  1. CC-5013 (LENALIDOMIDE) (CAPSULES) [Suspect]
     Indication: MULTIPLE MYELOMA
     Dosage: 25 MG DAILY ORAL
     Route: 048
     Dates: start: 20070514
  2. DEXAMETHASONE TAB [Suspect]
     Indication: MULTIPLE MYELOMA
     Dosage: ORAL ; 20 MG OD ORAL
     Route: 048
     Dates: start: 20070623, end: 20070627
  3. DEXAMETHASONE TAB [Suspect]
     Indication: MULTIPLE MYELOMA
     Dosage: ORAL ; 20 MG OD ORAL
     Route: 048
     Dates: start: 20070613

REACTIONS (12)
  - DEHYDRATION [None]
  - DIALYSIS [None]
  - DYSPNOEA [None]
  - FLUID OVERLOAD [None]
  - HAEMOGLOBIN ABNORMAL [None]
  - LOWER RESPIRATORY TRACT INFECTION [None]
  - MALIGNANT NEOPLASM PROGRESSION [None]
  - MOBILITY DECREASED [None]
  - MULTIPLE MYELOMA [None]
  - NEUTROPHIL COUNT ABNORMAL [None]
  - PAIN [None]
  - PLATELET COUNT ABNORMAL [None]
